FAERS Safety Report 5264991-1 (Version None)
Quarter: 2007Q1

REPORT INFORMATION
  Report Type: 
  Country: None (occurrence: None)
  Receive Date: 20070314
  Receipt Date: 20070302
  Transmission Date: 20070707
  Serious: Yes (Hospitalization)
  Sender: FDA-Public Use
  Company Number: GB-ROCHE-486341

PATIENT
  Age: 67 Year
  Sex: Female
  Weight: 158.7 kg

DRUGS (1)
  1. XENICAL [Suspect]
     Indication: OBESITY
     Route: 048
     Dates: start: 20070217

REACTIONS (1)
  - CEREBROVASCULAR ACCIDENT [None]
